FAERS Safety Report 10559607 (Version 1)
Quarter: 2014Q4

REPORT INFORMATION
  Report Type: Spontaneous
  Country: US (occurrence: None)
  Receive Date: 20141031
  Receipt Date: 20141031
  Transmission Date: 20150529
  Serious: Yes (Disabling)
  Sender: FDA-Public Use
  Company Number: None

PATIENT
  Age: 57 Year
  Sex: Female
  Weight: 47.17 kg

DRUGS (3)
  1. CLONAZEPAM. [Suspect]
     Active Substance: CLONAZEPAM
     Indication: DRUG WITHDRAWAL MAINTENANCE THERAPY
     Dosage: .5/1?EVERY 8 HRS?TAKEN BY MOUTH
     Route: 048
     Dates: start: 20140601, end: 20141029
  2. ATIVAN [Suspect]
     Active Substance: LORAZEPAM
     Indication: SLEEP DISORDER
     Dosage: 1MG/1?TWICE DAILY?TAKEN BY MOUTH
     Route: 048
     Dates: start: 20140310, end: 20140601
  3. ATIVAN [Suspect]
     Active Substance: LORAZEPAM
     Indication: ANXIETY
     Dosage: 1MG/1?TWICE DAILY?TAKEN BY MOUTH
     Route: 048
     Dates: start: 20140310, end: 20140601

REACTIONS (12)
  - Drug tolerance [None]
  - Weight decreased [None]
  - Urticaria [None]
  - Burning sensation [None]
  - Drug withdrawal syndrome [None]
  - Insomnia [None]
  - Muscle spasms [None]
  - Depression suicidal [None]
  - Pain [None]
  - Feeding disorder [None]
  - Akathisia [None]
  - Panic attack [None]

NARRATIVE: CASE EVENT DATE: 20141029
